FAERS Safety Report 9055436 (Version 2)
Quarter: 2013Q1

REPORT INFORMATION
  Report Type: Spontaneous
  Country: US (occurrence: US)
  Receive Date: 20130131
  Receipt Date: 20130131
  Transmission Date: 20140127
  Serious: Yes (Hospitalization, Other)
  Sender: FDA-Public Use
  Company Number: US-PFIZER INC-2013017015

PATIENT
  Age: 82 Year
  Sex: Female
  Weight: 107 kg

DRUGS (1)
  1. ESTRING [Suspect]
     Dosage: UNK
     Route: 067

REACTIONS (4)
  - Fall [Unknown]
  - Cardiac disorder [Unknown]
  - Dizziness [Recovered/Resolved]
  - Nausea [Recovered/Resolved]
